FAERS Safety Report 7272942-3 (Version None)
Quarter: 2011Q1

REPORT INFORMATION
  Report Type: 
  Country: None (occurrence: None)
  Receive Date: 20110203
  Receipt Date: 20110128
  Transmission Date: 20110831
  Serious: Yes (Hospitalization)
  Sender: FDA-Public Use
  Company Number: A0788679A

PATIENT
  Age: 46 Year
  Sex: Male
  Weight: 81.8 kg

DRUGS (8)
  1. AVANDIA [Suspect]
     Indication: DIABETES MELLITUS
     Dosage: 8MG PER DAY
     Route: 048
     Dates: start: 20010901, end: 20070525
  2. METFORMIN [Concomitant]
  3. ZOLOFT [Concomitant]
  4. ALPRAZOLAM [Concomitant]
  5. INSULIN [Concomitant]
  6. RANITIDINE [Concomitant]
  7. GLUCOTROL [Concomitant]
  8. ALBUTEROL [Concomitant]

REACTIONS (14)
  - BLINDNESS [None]
  - CORONARY ARTERY DISEASE [None]
  - CEREBROVASCULAR ACCIDENT [None]
  - CHEST PAIN [None]
  - AMNESIA [None]
  - THROMBOSIS [None]
  - VENTRICULAR EXTRASYSTOLES [None]
  - DEEP VEIN THROMBOSIS [None]
  - MYOCARDIAL INFARCTION [None]
  - ROAD TRAFFIC ACCIDENT [None]
  - ISCHAEMIA [None]
  - RECTAL HAEMORRHAGE [None]
  - SINUS BRADYCARDIA [None]
  - CORONARY ARTERY OCCLUSION [None]
